FAERS Safety Report 18448170 (Version 1)
Quarter: 2020Q4

REPORT INFORMATION
  Report Type: Spontaneous
  Country: US (occurrence: US)
  Receive Date: 20201030
  Receipt Date: 20201030
  Transmission Date: 20210114
  Serious: Yes (Hospitalization, Other)
  Sender: FDA-Public Use
  Company Number: US-ASTRAZENECA-2020SF38927

PATIENT
  Age: 39 Year
  Sex: Female

DRUGS (5)
  1. FARXIGA [Suspect]
     Active Substance: DAPAGLIFLOZIN PROPANEDIOL
     Indication: DIABETES MELLITUS
     Dosage: 10.0MG UNKNOWN
     Route: 048
     Dates: start: 202002, end: 20200930
  2. INSULIN [Concomitant]
     Active Substance: INSULIN NOS
     Dates: start: 20200930
  3. METFORMIN [Concomitant]
     Active Substance: METFORMIN HYDROCHLORIDE
  4. OZEMPIC [Concomitant]
     Active Substance: SEMAGLUTIDE
  5. INSULIN [Concomitant]
     Active Substance: INSULIN NOS
     Dates: end: 2020

REACTIONS (6)
  - Hyperglycaemia [Recovering/Resolving]
  - Dehydration [Unknown]
  - Loss of consciousness [Recovered/Resolved]
  - Delirium [Unknown]
  - Diabetes mellitus inadequate control [Not Recovered/Not Resolved]
  - Fatigue [Not Recovered/Not Resolved]

NARRATIVE: CASE EVENT DATE: 20200930
